FAERS Safety Report 6257287-2 (Version None)
Quarter: 2009Q3

REPORT INFORMATION
  Report Type: 
  Country: None (occurrence: None)
  Receive Date: 20090706
  Receipt Date: 20090624
  Transmission Date: 20100115
  Serious: Yes (Hospitalization, Other)
  Sender: FDA-Public Use
  Company Number: GB-ELI_LILLY_AND_COMPANY-GB200906005804

PATIENT
  Age: 67 Year
  Sex: Male

DRUGS (15)
  1. FLUOXETINE HCL [Suspect]
     Indication: DEPRESSION
     Dosage: 20 MG, DAILY (1/D)
     Route: 048
     Dates: end: 20090430
  2. FLUOXETINE HCL [Suspect]
     Dosage: 40 MG, DAILY (1/D)
     Route: 048
     Dates: start: 20090501
  3. ACETAZOLAMIDE [Concomitant]
     Dosage: 250 MG, 2/D
     Route: 042
     Dates: start: 20090506
  4. CIPROFLOXACIN [Concomitant]
     Indication: ABSCESS
     Dosage: 400 MG, DAILY (1/D)
     Route: 042
     Dates: end: 20090504
  5. MELATONIN [Concomitant]
     Indication: SLEEP DISORDER
     Dosage: 3 MG, DAILY (1/D)
     Route: 048
     Dates: start: 20090422
  6. TYGACIL [Concomitant]
     Indication: ABSCESS
     Dosage: 50 MG, 2/D
     Route: 048
     Dates: end: 20090504
  7. ASPIRIN [Concomitant]
     Indication: CARDIAC DISORDER
     Dosage: 75 MG, DAILY (1/D)
     Route: 048
  8. BISOPROLOL [Concomitant]
     Indication: CARDIAC DISORDER
     Dosage: 2.5 MG, DAILY (1/D)
     Route: 048
  9. DIGOXIN [Concomitant]
     Dosage: 125 UG, DAILY (1/D)
     Route: 048
  10. FUROSEMIDE [Concomitant]
     Dosage: 40 MG, DAILY (1/D)
     Route: 048
  11. LANSOPRAZOLE [Concomitant]
     Indication: CARDIAC DISORDER
     Dosage: 30 MG, DAILY (1/D)
     Route: 048
  12. RAMIPRIL [Concomitant]
     Indication: CARDIAC DISORDER
     Dosage: 5 MG, DAILY (1/D)
     Route: 048
  13. ALBUTEROL [Concomitant]
     Dosage: 5 MG, 4/D
     Route: 055
  14. SIMVASTATIN [Concomitant]
     Indication: CARDIAC DISORDER
     Dosage: 20 MG, DAILY (1/D)
     Route: 048
  15. SPIRONOLACTONE [Concomitant]
     Indication: CARDIAC DISORDER
     Dosage: 25 MG, DAILY (1/D)
     Route: 048

REACTIONS (2)
  - ALANINE AMINOTRANSFERASE INCREASED [None]
  - ASPARTATE AMINOTRANSFERASE INCREASED [None]
